FAERS Safety Report 24031524 (Version 1)
Quarter: 2024Q2

REPORT INFORMATION
  Report Type: Spontaneous
  Country: US (occurrence: US)
  Receive Date: 20240629
  Receipt Date: 20240629
  Transmission Date: 20240716
  Serious: No
  Sender: FDA-Public Use
  Company Number: US-ABBVIE-5817331

PATIENT
  Age: 57 Year
  Sex: Male

DRUGS (7)
  1. BOTOX COSMETIC [Suspect]
     Active Substance: ONABOTULINUMTOXINA
     Indication: Skin wrinkling
     Dosage: TIME INTERVAL: AS NECESSARY: FREQUENCY: EVERY FOUR TO FOUR AND A HALF MONTHS
     Route: 030
     Dates: start: 20110331, end: 20110331
  2. BOTOX COSMETIC [Suspect]
     Active Substance: ONABOTULINUMTOXINA
     Indication: Skin wrinkling
     Dosage: TIME INTERVAL: AS NECESSARY: DOSE:30 UNITS , FREQUENCY: EVERY FOUR TO FOUR AND A HALF MONTHS
     Route: 065
  3. BOTOX COSMETIC [Suspect]
     Active Substance: ONABOTULINUMTOXINA
     Indication: Skin wrinkling
     Dosage: TIME INTERVAL: AS NECESSARY: DOSE:28 UNITS,  FREQUENCY: EVERY FOUR TO FOUR AND A HALF MONTHS
     Route: 065
  4. BOTOX COSMETIC [Suspect]
     Active Substance: ONABOTULINUMTOXINA
     Indication: Skin wrinkling
     Dosage: TIME INTERVAL: AS NECESSARY: DOSE: 15 UNITS,  FREQUENCY: EVERY FOUR TO FOUR AND A HALF MONTHS
     Route: 065
  5. BOTOX COSMETIC [Suspect]
     Active Substance: ONABOTULINUMTOXINA
     Indication: Skin wrinkling
     Dosage: TIME INTERVAL: AS NECESSARY: FREQUENCY: EVERY FOUR TO FOUR AND A HALF MONTHS
     Route: 065
     Dates: start: 20240117, end: 20240117
  6. BOTOX COSMETIC [Suspect]
     Active Substance: ONABOTULINUMTOXINA
     Indication: Skin wrinkling
     Dosage: TIME INTERVAL: AS NECESSARY: DOSE: 12 UNITS ,  FREQUENCY: EVERY FOUR TO FOUR AND A HALF MONTHS
     Route: 065
     Dates: start: 20240131, end: 20240131
  7. BOTOX COSMETIC [Suspect]
     Active Substance: ONABOTULINUMTOXINA
     Indication: Skin wrinkling
     Dosage: TIME INTERVAL: AS NECESSARY: DOSE:12 UNITS ,  FREQUENCY: EVERY FOUR TO FOUR AND A HALF MONTHS
     Route: 065
     Dates: start: 20240131, end: 20240131

REACTIONS (1)
  - Therapeutic response shortened [Not Recovered/Not Resolved]

NARRATIVE: CASE EVENT DATE: 20240131
